FAERS Safety Report 10032348 (Version 1)
Quarter: 2014Q1

REPORT INFORMATION
  Report Type: Spontaneous
  Country: CA (occurrence: None)
  Receive Date: 20140320
  Receipt Date: 20140320
  Transmission Date: 20141002
  Serious: Yes (Life-Threatening)
  Sender: FDA-Public Use
  Company Number: 2014000067

PATIENT
  Age: 64 Year
  Sex: Male
  Weight: 73 kg

DRUGS (9)
  1. ACEON (PERINDOPRIL ERBUMINE) TABLET, 2MG [Suspect]
     Indication: PRODUCT USED FOR UNKNOWN INDICATION
     Route: 048
  2. EZETROL (EZETIMIBE) [Suspect]
     Indication: PRODUCT USED FOR UNKNOWN INDICATION
     Route: 048
  3. CLONAZEPAM (CLONAZEPAM) (CLONAZEPAM) [Concomitant]
  4. FINASTERIDE (FINASTERIDE) [Concomitant]
  5. FLUVASTATIN SODIUM (FLUVASTATIN SODIUM) [Concomitant]
  6. NIASPAN (NICOTINIC ACID) [Concomitant]
  7. RIVASA (ACETYLSALICYLIC ACID) [Concomitant]
  8. BISOPROLOL SANDOZ (BISOPROLOL FUMARATE) [Concomitant]
  9. TAMSULOSIN SANDOZ (TAMSULOSIN HYDROCHLORIDE) [Concomitant]

REACTIONS (6)
  - Dyspnoea [None]
  - Pruritus [None]
  - Angioedema [None]
  - Pharyngeal oedema [None]
  - Swelling face [None]
  - Swollen tongue [None]
